FAERS Safety Report 7867021-8 (Version None)
Quarter: 2011Q4

REPORT INFORMATION
  Report Type: 
  Country: None (occurrence: None)
  Receive Date: 20111026
  Receipt Date: 20111014
  Transmission Date: 20120403
  Serious: Yes (Other)
  Sender: FDA-Public Use
  Company Number: 1046595

PATIENT
  Age: 74 Year
  Sex: Male

DRUGS (2)
  1. LEUCOVORIN CALCIUM [Suspect]
     Indication: METASTASIS
     Dates: start: 20081231
  2. OXALIPLATIN [Suspect]
     Indication: METASTASIS
     Dates: start: 20081231

REACTIONS (6)
  - BALANCE DISORDER [None]
  - HYPOAESTHESIA [None]
  - COORDINATION ABNORMAL [None]
  - PERIPHERAL SENSORY NEUROPATHY [None]
  - POLYNEUROPATHY [None]
  - MOTOR DYSFUNCTION [None]
